FAERS Safety Report 18140234 (Version 1)
Quarter: 2020Q3

REPORT INFORMATION
  Report Type: Spontaneous
  Country: CN (occurrence: CN)
  Receive Date: 20200812
  Receipt Date: 20200812
  Transmission Date: 20201103
  Serious: Yes (Other)
  Sender: FDA-Public Use
  Company Number: NVSC2020CN220573

PATIENT
  Age: 66 Year
  Sex: Male
  Weight: 80 kg

DRUGS (11)
  1. NACL [Concomitant]
     Active Substance: SODIUM CHLORIDE
     Indication: PRODUCT USED FOR UNKNOWN INDICATION
     Dosage: 100 ML, QD
     Route: 042
     Dates: start: 20200716, end: 20200717
  2. ROCEPHIN [Concomitant]
     Active Substance: CEFTRIAXONE SODIUM
     Indication: INFECTION
     Dosage: 2 G, QD
     Route: 042
     Dates: start: 20200716, end: 20200717
  3. NACL [Concomitant]
     Active Substance: SODIUM CHLORIDE
     Dosage: 100 ML, QD
     Route: 042
     Dates: start: 20200723, end: 20200727
  4. NACL [Concomitant]
     Active Substance: SODIUM CHLORIDE
     Dosage: 100 ML, BID
     Route: 042
     Dates: start: 20200718, end: 20200724
  5. NACL [Concomitant]
     Active Substance: SODIUM CHLORIDE
     Dosage: 100 ML, TID
     Route: 042
     Dates: start: 20200724, end: 20200728
  6. PRAZOLE [PANTOPRAZOLE SODIUM SESQUIHYDRATE] [Suspect]
     Active Substance: PANTOPRAZOLE SODIUM
     Indication: COMBINED IMMUNODEFICIENCY
     Dosage: 10 MG, QD
     Route: 042
     Dates: start: 20200723, end: 20200727
  7. SODIUM VALPROATE [Concomitant]
     Active Substance: VALPROATE SODIUM
     Indication: EPILEPSY
     Dosage: 10 ML, BID
     Route: 048
     Dates: start: 20200720, end: 20200724
  8. SULPERAZONE [Concomitant]
     Active Substance: CEFOPERAZONE SODIUM\SULBACTAM SODIUM
     Indication: INFECTION
     Dosage: 3 G, BID
     Route: 042
     Dates: start: 20200718, end: 20200724
  9. TEGRETOL [Suspect]
     Active Substance: CARBAMAZEPINE
     Indication: EPILEPSY
     Dosage: 200 MG, BID
     Route: 048
     Dates: start: 20200720, end: 20200728
  10. MEROPENEM. [Suspect]
     Active Substance: MEROPENEM
     Indication: PRODUCT USED FOR UNKNOWN INDICATION
     Dosage: 1 G, TID
     Route: 042
     Dates: start: 20200724, end: 20200728
  11. NACL [Concomitant]
     Active Substance: SODIUM CHLORIDE
     Dosage: 100 ML, BID
     Route: 042
     Dates: start: 20200716, end: 20200720

REACTIONS (9)
  - Pneumonia aspiration [Unknown]
  - Diabetes mellitus [Unknown]
  - Cerebral disorder [Unknown]
  - Hypertension [Unknown]
  - Renal failure [Unknown]
  - Hepatic enzyme increased [Not Recovered/Not Resolved]
  - Pneumonitis [Unknown]
  - Lacunar infarction [Unknown]
  - Bronchiectasis [Unknown]

NARRATIVE: CASE EVENT DATE: 20200727
